FAERS Safety Report 6242209-0 (Version None)
Quarter: 2009Q2

REPORT INFORMATION
  Report Type: 
  Country: None (occurrence: None)
  Receive Date: 20090624
  Receipt Date: 20090622
  Transmission Date: 20091009
  Serious: Yes (Other)
  Sender: FDA-Public Use
  Company Number: AU-BRISTOL-MYERS SQUIBB COMPANY-14672943

PATIENT
  Age: 74 Year
  Sex: Female

DRUGS (1)
  1. HYDREA [Suspect]

REACTIONS (2)
  - DEMENTIA [None]
  - FALL [None]
